FAERS Safety Report 25917421 (Version 1)
Quarter: 2025Q4

REPORT INFORMATION
  Report Type: Report from Study
  Country: US (occurrence: US)
  Receive Date: 20251014
  Receipt Date: 20251014
  Transmission Date: 20260117
  Serious: Yes (Other)
  Sender: ABBVIE
  Company Number: US-ABBVIE-6499669

PATIENT
  Age: 42 Year
  Sex: Female

DRUGS (1)
  1. RINVOQ [Suspect]
     Active Substance: UPADACITINIB
     Indication: Rheumatoid arthritis
     Dosage: FORM STRENGTH: 15 MG
     Route: 048
     Dates: start: 202503

REACTIONS (7)
  - Medical procedure [Unknown]
  - Pain [Unknown]
  - Endoscopy [Unknown]
  - Chills [Unknown]
  - Nervous system disorder [Unknown]
  - Joint swelling [Unknown]
  - Oedema [Unknown]

NARRATIVE: CASE EVENT DATE: 20250101
